FAERS Safety Report 4883367-X (Version None)
Quarter: 2006Q1

REPORT INFORMATION
  Report Type: 
  Country: None (occurrence: None)
  Receive Date: 20060118
  Receipt Date: 20060110
  Transmission Date: 20060701
  Serious: Yes (Life-Threatening)
  Sender: FDA-Public Use
  Company Number: 2006GB00058

PATIENT
  Age: 78 Year
  Sex: Male
  Weight: 75 kg

DRUGS (5)
  1. PROPOFOL [Suspect]
     Route: 042
     Dates: start: 20051224
  2. SUXAMETHONIUM [Suspect]
     Route: 042
     Dates: start: 20051224
  3. FENTANYL [Suspect]
     Route: 042
     Dates: start: 20051224
  4. CEFUROXIME [Concomitant]
     Indication: PERITONITIS
     Route: 042
     Dates: start: 20051223, end: 20051224
  5. METRONIDAZOLE [Concomitant]
     Indication: PERITONITIS
     Route: 042

REACTIONS (3)
  - BRONCHOSPASM [None]
  - CIRCULATORY COLLAPSE [None]
  - SKIN REACTION [None]
